FAERS Safety Report 12139660 (Version 2)
Quarter: 2016Q1

REPORT INFORMATION
  Report Type: Report from Study
  Country: US (occurrence: US)
  Receive Date: 20160303
  Receipt Date: 20160325
  Transmission Date: 20160526
  Serious: No
  Sender: FDA-Public Use
  Company Number: US-AMGEN-USASL2016024320

PATIENT
  Age: 52 Year
  Sex: Female

DRUGS (1)
  1. ENBREL [Suspect]
     Active Substance: ETANERCEPT
     Indication: RHEUMATOID ARTHRITIS
     Dosage: 50 MG, QWK
     Route: 065
     Dates: start: 20160215

REACTIONS (11)
  - Headache [Unknown]
  - Injection site pruritus [Unknown]
  - Hyperhidrosis [Unknown]
  - Oral herpes [Unknown]
  - Vomiting [Unknown]
  - Injection site erythema [Unknown]
  - Abdominal discomfort [Unknown]
  - Nasal congestion [Unknown]
  - Injection site reaction [Unknown]
  - Oral mucosal exfoliation [Unknown]
  - Injection site mass [Unknown]

NARRATIVE: CASE EVENT DATE: 20160222
